FAERS Safety Report 5654985-6 (Version None)
Quarter: 2008Q1

REPORT INFORMATION
  Report Type: 
  Country: None (occurrence: None)
  Receive Date: 20080307
  Receipt Date: 20071010
  Transmission Date: 20080703
  Serious: No
  Sender: FDA-Public Use
  Company Number: A0686936A

PATIENT
  Age: 52 Year
  Sex: Female

DRUGS (8)
  1. REQUIP [Suspect]
     Indication: RESTLESS LEGS SYNDROME
     Dosage: .25MG AT NIGHT
     Route: 048
     Dates: start: 20070413
  2. CELEBREX [Concomitant]
  3. ZYRTEC [Concomitant]
  4. ADVAIR DISKUS 100/50 [Concomitant]
  5. ALBUTEROL [Concomitant]
  6. VICODIN [Concomitant]
  7. PHENERGAN HCL [Concomitant]
  8. XANAX [Concomitant]

REACTIONS (3)
  - DIZZINESS [None]
  - SOMNAMBULISM [None]
  - VOMITING [None]
